FAERS Safety Report 5816402-2 (Version None)
Quarter: 2008Q3

REPORT INFORMATION
  Report Type: 
  Country: None (occurrence: None)
  Receive Date: 20080721
  Receipt Date: 20080325
  Transmission Date: 20090109
  Serious: No
  Sender: FDA-Public Use
  Company Number: US-BAUSCH-2008BL001331

PATIENT
  Age: 70 Year
  Sex: Male

DRUGS (6)
  1. OPCON-A [Suspect]
     Indication: EYE PRURITUS
     Route: 047
     Dates: start: 20080323, end: 20080323
  2. OPCON-A [Suspect]
     Route: 047
     Dates: start: 20080325, end: 20080325
  3. NAPROXEN [Concomitant]
     Indication: ARTHRITIS
     Route: 048
  4. GLUCOSAMINE W/CHONDROITIN [Concomitant]
     Route: 048
  5. VITAMIN E [Concomitant]
  6. CALCIUM [Concomitant]

REACTIONS (2)
  - NASAL CONGESTION [None]
  - RHINORRHOEA [None]
